FAERS Safety Report 12690449 (Version 1)
Quarter: 2016Q3

REPORT INFORMATION
  Report Type: Spontaneous
  Country: US (occurrence: US)
  Receive Date: 20160826
  Receipt Date: 20160826
  Transmission Date: 20161109
  Serious: No
  Sender: FDA-Public Use
  Company Number: US-009507513-1608USA004902

PATIENT
  Age: 82 Year
  Sex: Female
  Weight: 57.6 kg

DRUGS (4)
  1. KEYTRUDA [Suspect]
     Active Substance: PEMBROLIZUMAB
     Indication: MALIGNANT MELANOMA
     Dosage: RIGHT AFTER THE FIRST OT THIS YEAR, IN ARM AS IV, EVERY 3 WEEKS
     Route: 042
     Dates: start: 2016, end: 201607
  2. ZOMETA [Concomitant]
     Active Substance: ZOLEDRONIC ACID
  3. LIVALO [Concomitant]
     Active Substance: PITAVASTATIN CALCIUM
     Dosage: 2 PILLS A WEEK
  4. ARIMIDEX [Concomitant]
     Active Substance: ANASTROZOLE

REACTIONS (1)
  - Rales [Unknown]

NARRATIVE: CASE EVENT DATE: 201607
